FAERS Safety Report 6824234-1 (Version None)
Quarter: 2010Q3

REPORT INFORMATION
  Report Type: 
  Country: None (occurrence: None)
  Receive Date: 20100708
  Receipt Date: 20061010
  Transmission Date: 20110219
  Serious: No
  Sender: FDA-Public Use
  Company Number: US-PFIZER INC-2006125563

PATIENT
  Age: 63 Year
  Sex: Female
  Weight: 83.91 kg

DRUGS (3)
  1. CHANTIX [Suspect]
     Indication: EX-TOBACCO USER
     Dates: start: 20060901, end: 20061008
  2. SYNTHROID [Concomitant]
  3. LESCOL [Concomitant]

REACTIONS (6)
  - ABNORMAL DREAMS [None]
  - HEADACHE [None]
  - NAUSEA [None]
  - RETCHING [None]
  - VISION BLURRED [None]
  - VOMITING [None]
